FAERS Safety Report 8769513 (Version 4)
Quarter: 2013Q2

REPORT INFORMATION
  Report Type: Report from Study
  Country: JP (occurrence: JP)
  Receive Date: 20120904
  Receipt Date: 20130529
  Transmission Date: 20140414
  Serious: Yes (Hospitalization)
  Sender: FDA-Public Use
  Company Number: JP-ROCHE-1109279

PATIENT
  Age: 69 Year
  Sex: Female
  Weight: 70 kg

DRUGS (9)
  1. OMALIZUMAB [Suspect]
     Indication: ASTHMA
     Route: 058
     Dates: start: 20111128
  2. OMALIZUMAB [Suspect]
     Route: 065
     Dates: start: 20111222
  3. OMALIZUMAB [Suspect]
     Route: 065
     Dates: start: 20120119
  4. SYMBICORT [Concomitant]
     Route: 065
     Dates: start: 20110628
  5. THEOLONG [Concomitant]
     Route: 065
     Dates: start: 20110628
  6. PREDONINE [Concomitant]
     Route: 065
     Dates: start: 20110628
  7. MEPTIN [Concomitant]
     Route: 065
     Dates: start: 20110628
  8. ALFAROL [Concomitant]
     Route: 065
     Dates: start: 20111128
  9. GASTER D [Concomitant]
     Route: 065
     Dates: start: 20111128

REACTIONS (3)
  - Pneumonia bacterial [Recovered/Resolved]
  - Bronchitis [Recovered/Resolved]
  - Asthma [Recovered/Resolved]
